FAERS Safety Report 8836671 (Version 1)
Quarter: 2012Q4

REPORT INFORMATION
  Report Type: Spontaneous
  Country: US (occurrence: None)
  Receive Date: 20121010
  Receipt Date: 20121010
  Transmission Date: 20130627
  Serious: Yes (Other)
  Sender: FDA-Public Use
  Company Number: VAL_00905_2012

PATIENT
  Age: 86 Year
  Sex: Female
  Weight: 70 kg

DRUGS (1)
  1. CIBACEN [Suspect]
     Indication: HYPERTENSION
     Dates: start: 20110726, end: 20120518

REACTIONS (1)
  - Pemphigoid [None]
